FAERS Safety Report 20199457 (Version 1)
Quarter: 2021Q4

REPORT INFORMATION
  Report Type: Spontaneous
  Country: US (occurrence: US)
  Receive Date: 20211217
  Receipt Date: 20211217
  Transmission Date: 20220303
  Serious: No
  Sender: FDA-Public Use
  Company Number: US-PACIRA-2021000241

PATIENT
  Age: 62 Year
  Sex: Male

DRUGS (1)
  1. EXPAREL [Suspect]
     Active Substance: BUPIVACAINE
     Dosage: NOT PROVIDED
     Route: 065
     Dates: start: 20210311, end: 20210311

REACTIONS (4)
  - Hypotonia [Recovering/Resolving]
  - Dysstasia [Recovering/Resolving]
  - Seroma [Recovering/Resolving]
  - Hypoaesthesia [Recovering/Resolving]
